FAERS Safety Report 17247711 (Version 1)
Quarter: 2019Q4

REPORT INFORMATION
  Report Type: Spontaneous
  Country: US (occurrence: US)
  Receive Date: 20191213
  Receipt Date: 20191213
  Transmission Date: 20200122
  Serious: No
  Sender: FDA-Public Use
  Company Number: None

PATIENT
  Age: 56 Year
  Sex: Female

DRUGS (1)
  1. ZORTRESS [Suspect]
     Active Substance: EVEROLIMUS
     Indication: TRANSPLANT
     Dosage: ?          OTHER DOSE:MG;OTHER FREQUENCY:UNKNOWN;?
     Route: 048
     Dates: start: 201608

REACTIONS (3)
  - Musculoskeletal stiffness [None]
  - Poor quality sleep [None]
  - Arthralgia [None]

NARRATIVE: CASE EVENT DATE: 20191213
